FAERS Safety Report 8300863-3 (Version None)
Quarter: 2012Q2

REPORT INFORMATION
  Report Type: 
  Country: None (occurrence: None)
  Receive Date: 20120420
  Receipt Date: 20120416
  Transmission Date: 20120825
  Serious: Yes (Hospitalization, Other)
  Sender: FDA-Public Use
  Company Number: JP-GENZYME-THYM-1002710

PATIENT
  Sex: Female
  Weight: 52 kg

DRUGS (19)
  1. BUSULFAN [Concomitant]
     Indication: NON-HODGKIN'S LYMPHOMA
     Dosage: UNK
     Dates: end: 20100911
  2. METHOTREXATE [Concomitant]
     Dosage: UNK
     Dates: start: 20100919, end: 20100919
  3. ACYCLOVIR [Concomitant]
     Indication: INFECTION PROPHYLAXIS
     Dosage: UNK
     Dates: start: 20100909
  4. METHOTREXATE [Concomitant]
     Indication: PROPHYLAXIS AGAINST GRAFT VERSUS HOST DISEASE
     Dosage: UNK
     Dates: start: 20100917, end: 20100917
  5. CIPROFLOXACIN [Concomitant]
     Indication: INFECTION PROPHYLAXIS
     Dosage: UNK
     Dates: start: 20100909, end: 20100914
  6. THYMOGLOBULIN [Suspect]
     Indication: BONE MARROW CONDITIONING REGIMEN
     Dosage: 250 MG, QD
     Route: 042
     Dates: start: 20100914, end: 20100914
  7. PREDNISOLONE [Concomitant]
     Indication: GRAFT VERSUS HOST DISEASE
     Dosage: UNK
     Dates: start: 20101016, end: 20110316
  8. METHYLPREDNISOLONE [Concomitant]
     Indication: GRAFT VERSUS HOST DISEASE
     Dosage: UNK
     Dates: start: 20101007, end: 20101015
  9. FLUDARABINE PHOSPHATE [Concomitant]
     Indication: MYELODYSPLASTIC SYNDROME
  10. VALPROATE SODIUM [Concomitant]
     Indication: PROPHYLAXIS
     Dosage: UNK
     Dates: start: 20100908, end: 20100914
  11. FLUDARABINE PHOSPHATE [Concomitant]
     Indication: NON-HODGKIN'S LYMPHOMA
     Dosage: UNK
     Dates: start: 20100908, end: 20100913
  12. BUSULFAN [Concomitant]
     Indication: MYELODYSPLASTIC SYNDROME
  13. CEFEPIME HYDROCHLORIDE [Concomitant]
     Indication: INFECTION PROPHYLAXIS
     Dosage: UNK
     Dates: start: 20100914, end: 20100923
  14. LENOGRASTIM [Concomitant]
     Indication: INFECTION PROPHYLAXIS
     Dosage: UNK
     Dates: start: 20100922, end: 20100925
  15. TACROLIMUS [Concomitant]
     Indication: PROPHYLAXIS AGAINST GRAFT VERSUS HOST DISEASE
     Dosage: UNK
     Dates: start: 20100915
  16. METHOTREXATE [Concomitant]
     Dosage: UNK
     Dates: start: 20100922, end: 20100922
  17. METHOTREXATE [Concomitant]
     Dosage: UNK
     Dates: start: 20100927, end: 20100927
  18. FLUCONAZOLE [Concomitant]
     Indication: INFECTION PROPHYLAXIS
     Dosage: UNK
     Dates: start: 20100909
  19. HYDROCORTISONE SODIUM SUCCINATE [Concomitant]
     Indication: GRAFT VERSUS HOST DISEASE
     Dosage: UNK
     Dates: start: 20101001, end: 20101006

REACTIONS (5)
  - HELICOBACTER SEPSIS [None]
  - CHRONIC GRAFT VERSUS HOST DISEASE [None]
  - ACUTE GRAFT VERSUS HOST DISEASE IN SKIN [None]
  - FEBRILE NEUTROPENIA [None]
  - PYREXIA [None]
